FAERS Safety Report 8774383 (Version 1)
Quarter: 2012Q4

REPORT INFORMATION
  Report Type: 
  Country: US (occurrence: US)
  Receive Date: 20120907
  Receipt Date: 20120907
  Transmission Date: 20130627
  Serious: No
  Sender: FDA-Public Use
  Company Number: US-VERTEX PHARMACEUTICAL INC.-2012-020241

PATIENT
  Age: 65 Year
  Sex: Male
  Weight: 72 kg

DRUGS (13)
  1. VX-950 [Suspect]
     Indication: HEPATITIS C
     Dosage: 750 mg, tid
  2. PEGASYS [Concomitant]
     Indication: HEPATITIS C
     Dosage: 180 ?g, UNK
  3. RIBAVIRIN [Concomitant]
     Indication: HEPATITIS C
     Dosage: 200 mg, UNK
  4. LISINOPRIL [Concomitant]
     Dosage: 20 mg, UNK
  5. CITALOPRAM [Concomitant]
     Dosage: 10 mg, UNK
  6. OMEPRAZOLE [Concomitant]
     Dosage: 20 mg, UNK
  7. CITIRIZINE                         /00884302/ [Concomitant]
     Dosage: 10 mg, UNK
  8. HYDROXYZINE HCL [Concomitant]
     Dosage: 25 mg, UNK
  9. VITAMIN D /00107901/ [Concomitant]
     Dosage: 1000 ut, UNK
  10. FISH OIL [Concomitant]
     Dosage: 1000 mg, UNK
  11. MULTIVITAMIN                       /00097801/ [Concomitant]
  12. ASPIRIN [Concomitant]
     Dosage: 81 mg, UNK
  13. CORTISONE [Concomitant]
     Dosage: UNK

REACTIONS (2)
  - Fatigue [Unknown]
  - Rash [Unknown]
